FAERS Safety Report 9795283 (Version 1)
Quarter: 2014Q1

REPORT INFORMATION
  Report Type: Report from Study
  Country: DE (occurrence: DE)
  Receive Date: 20140103
  Receipt Date: 20140103
  Transmission Date: 20141002
  Serious: Yes (Other)
  Sender: FDA-Public Use
  Company Number: DE-ROCHE-1328453

PATIENT
  Age: 39 Year
  Sex: Male

DRUGS (10)
  1. VALGANCICLOVIR [Suspect]
     Indication: CYTOMEGALOVIRUS INFECTION
     Dosage: 2X900 MG
     Route: 065
  2. GANCICLOVIR [Suspect]
     Indication: CYTOMEGALOVIRUS INFECTION
     Dosage: 2X5 MG/KG
     Route: 065
  3. GANCICLOVIR [Suspect]
     Dosage: 1X6 MG/KG
     Route: 065
  4. GANCICLOVIR [Suspect]
     Dosage: 2X5 MG/KG
     Route: 065
  5. FOSCARNET [Suspect]
     Indication: CYTOMEGALOVIRUS INFECTION
     Dosage: 2X90MG/ KG
     Route: 065
  6. FOSCARNET [Suspect]
     Dosage: 1X90MG/ KG
     Route: 065
  7. FOSCARNET [Suspect]
     Dosage: 2X90MG/ KG
     Route: 065
  8. FOSCARNET [Suspect]
     Dosage: 2X50MG/ KG
     Route: 065
  9. ACICLOVIR [Suspect]
     Indication: ANTIVIRAL PROPHYLAXIS
     Dosage: 2X800 MG FROM DAY -6 UNTIL DAY +35
     Route: 065
  10. CYCLOPHOSPHAMIDE [Concomitant]
     Route: 065

REACTIONS (1)
  - Drug resistance [Unknown]
